FAERS Safety Report 10935843 (Version 1)
Quarter: 2015Q1

REPORT INFORMATION
  Report Type: Spontaneous
  Country: JP (occurrence: JP)
  Receive Date: 20150320
  Receipt Date: 20150320
  Transmission Date: 20150721
  Serious: Yes (Hospitalization)
  Sender: FDA-Public Use
  Company Number: JP-BAYER-2014-036485

PATIENT
  Age: 94 Year
  Sex: Female

DRUGS (1)
  1. ACETYLSALICYLIC ACID({=100 MG) [Suspect]
     Active Substance: ASPIRIN
     Indication: ANTICOAGULANT THERAPY
     Dosage: UNK
     Route: 048

REACTIONS (5)
  - Pneumonia [None]
  - Gastrointestinal haemorrhage [None]
  - Biliary fistula [None]
  - Ascites [None]
  - Aneurysm ruptured [None]

NARRATIVE: CASE EVENT DATE: 201307
